FAERS Safety Report 12851544 (Version 1)
Quarter: 2016Q4

REPORT INFORMATION
  Report Type: Spontaneous
  Country: US (occurrence: US)
  Receive Date: 20161017
  Receipt Date: 20161017
  Transmission Date: 20170207
  Serious: No
  Sender: FDA-Public Use
  Company Number: US-PFIZER INC-2016480976

PATIENT
  Sex: Female

DRUGS (1)
  1. XELJANZ XR [Suspect]
     Active Substance: TOFACITINIB CITRATE
     Dosage: 11 MG, UNK

REACTIONS (20)
  - Bursa disorder [Unknown]
  - Arthralgia [Unknown]
  - Lymph node pain [Unknown]
  - Dysuria [Unknown]
  - Anxiety [Unknown]
  - Burning sensation [Unknown]
  - Dry eye [Unknown]
  - Joint swelling [Unknown]
  - Back pain [Unknown]
  - Depression [Unknown]
  - Lymphadenopathy [Unknown]
  - Fatigue [Unknown]
  - Myalgia [Unknown]
  - Rash [Unknown]
  - Paraesthesia [Unknown]
  - Cough [Unknown]
  - Dyspnoea [Unknown]
  - Dry mouth [Unknown]
  - Abdominal pain [Unknown]
  - Hypoaesthesia [Unknown]
